FAERS Safety Report 8027612-0 (Version None)
Quarter: 2012Q1

REPORT INFORMATION
  Report Type: 
  Country: None (occurrence: None)
  Receive Date: 20120105
  Receipt Date: 20120105
  Transmission Date: 20120608
  Serious: Yes (Hospitalization)
  Sender: FDA-Public Use
  Company Number: None

PATIENT
  Age: 85 Year
  Sex: Male
  Weight: 79.1 kg

DRUGS (1)
  1. RITUXIMAB [Suspect]
     Indication: B-CELL LYMPHOMA
     Dosage: 724 MG ONCE IV
     Route: 042
     Dates: start: 20111116, end: 20111116

REACTIONS (5)
  - HEADACHE [None]
  - NAUSEA [None]
  - HYPOTENSION [None]
  - VOMITING [None]
  - ANGINA PECTORIS [None]
